FAERS Safety Report 11449365 (Version 2)
Quarter: 2015Q3

REPORT INFORMATION
  Report Type: Spontaneous
  Country: US (occurrence: US)
  Receive Date: 20150902
  Receipt Date: 20150929
  Transmission Date: 20151125
  Serious: No
  Sender: FDA-Public Use
  Company Number: US-ASTRAZENECA-2015SE80578

PATIENT
  Sex: Female
  Weight: 43.1 kg

DRUGS (3)
  1. ARIMIDEX [Suspect]
     Active Substance: ANASTROZOLE
     Route: 048
  2. CLONAZEPAM. [Suspect]
     Active Substance: CLONAZEPAM
     Indication: ANXIETY
     Dosage: 0.5MG AT NIGHT, NON AZ PRODUCT
     Route: 048
  3. AROMASIN [Suspect]
     Active Substance: EXEMESTANE
     Indication: BREAST CANCER
     Dosage: 25MG AT NIGHT, NON AZ PRODUCT
     Route: 048
     Dates: start: 20150826

REACTIONS (12)
  - Weight decreased [Unknown]
  - Nausea [Not Recovered/Not Resolved]
  - Fatigue [Not Recovered/Not Resolved]
  - Neuralgia [Not Recovered/Not Resolved]
  - Pain [Unknown]
  - Cheilitis [Not Recovered/Not Resolved]
  - Dyspnoea [Not Recovered/Not Resolved]
  - Pain in extremity [Not Recovered/Not Resolved]
  - Dry mouth [Not Recovered/Not Resolved]
  - Myalgia [Unknown]
  - Hot flush [Not Recovered/Not Resolved]
  - Somnolence [Not Recovered/Not Resolved]
